FAERS Safety Report 21452413 (Version 1)
Quarter: 2022Q4

REPORT INFORMATION
  Report Type: Spontaneous
  Country: US (occurrence: None)
  Receive Date: 20221013
  Receipt Date: 20221013
  Transmission Date: 20230112
  Serious: Yes (Life-Threatening)
  Sender: FDA-Public Use
  Company Number: US-ROCHE-3196914

PATIENT
  Sex: Male

DRUGS (1)
  1. TNKASE [Suspect]
     Active Substance: TENECTEPLASE
     Indication: Androgen insensitivity syndrome
     Dosage: DRUG GIVEN AT 12:30A IN ED
     Route: 065

REACTIONS (2)
  - Haemorrhagic transformation stroke [Unknown]
  - Off label use [Unknown]
